FAERS Safety Report 21941303 (Version 1)
Quarter: 2023Q1

REPORT INFORMATION
  Report Type: Report from Study
  Country: US (occurrence: US)
  Receive Date: 20230202
  Receipt Date: 20230202
  Transmission Date: 20230417
  Serious: No
  Sender: FDA-Public Use
  Company Number: US-EXELIXIS-CABO-22054203

PATIENT
  Sex: Female

DRUGS (5)
  1. CABOMETYX [Suspect]
     Active Substance: CABOZANTINIB S-MALATE
     Indication: Renal cell carcinoma
     Dosage: 40 MG, QD
     Dates: start: 20220628, end: 20220830
  2. CORTEF [Concomitant]
     Active Substance: HYDROCORTISONE
     Dosage: UNK
  3. LEVOTHYROXINE [Concomitant]
     Active Substance: LEVOTHYROXINE
     Dosage: UNK
  4. AMLODIPINE BESYLATE\BENAZEPRIL HYDROCHLORIDE [Concomitant]
     Active Substance: AMLODIPINE BESYLATE\BENAZEPRIL HYDROCHLORIDE
     Dosage: UNK
  5. CALCIUM [Concomitant]
     Active Substance: CALCIUM
     Dosage: UNK

REACTIONS (7)
  - Gingival swelling [Recovered/Resolved]
  - Gingival pain [Recovered/Resolved]
  - Laboratory test abnormal [Unknown]
  - Hepatic enzyme increased [Recovered/Resolved]
  - Fatigue [Recovered/Resolved]
  - Constipation [Unknown]
  - Rash [Unknown]
